FAERS Safety Report 17877617 (Version 2)
Quarter: 2020Q3

REPORT INFORMATION
  Report Type: Spontaneous
  Country: US (occurrence: US)
  Receive Date: 20200609
  Receipt Date: 20200708
  Transmission Date: 20201103
  Serious: No
  Sender: FDA-Public Use
  Company Number: US-GLAXOSMITHKLINE-US2020AMR093433

PATIENT
  Sex: Female

DRUGS (1)
  1. ZEJULA [Suspect]
     Active Substance: NIRAPARIB
     Indication: OVARIAN CANCER
     Dosage: 100 MG, QD
     Dates: start: 20200417

REACTIONS (9)
  - Off label use [Unknown]
  - Adverse drug reaction [Unknown]
  - Erythema [Unknown]
  - Heart rate increased [Unknown]
  - Tremor [Unknown]
  - Headache [Unknown]
  - Underdose [Unknown]
  - Photosensitivity reaction [Unknown]
  - Haemoglobin decreased [Unknown]
